FAERS Safety Report 4658904-0 (Version None)
Quarter: 2005Q2

REPORT INFORMATION
  Report Type: 
  Country: None (occurrence: None)
  Receive Date: 20050509
  Receipt Date: 20050413
  Transmission Date: 20051028
  Serious: No
  Sender: FDA-Public Use
  Company Number: 05P-163-0293020-00

PATIENT
  Sex: Male
  Weight: 2.19 kg

DRUGS (3)
  1. KALETRA [Suspect]
     Route: 064
  2. LAMIVUDINE + ZIDOVUDINE [Suspect]
     Route: 064
  3. NELFINAVIR MESILATE [Suspect]
     Route: 064

REACTIONS (5)
  - CAESAREAN SECTION [None]
  - DRUG EXPOSURE DURING PREGNANCY [None]
  - FOETAL DISTRESS SYNDROME [None]
  - PREMATURE BABY [None]
  - SMALL FOR DATES BABY [None]
